FAERS Safety Report 4351878-1 (Version None)
Quarter: 2004Q2

REPORT INFORMATION
  Report Type: 
  Country: None (occurrence: None)
  Receive Date: 20040429
  Receipt Date: 20040106
  Transmission Date: 20050107
  Serious: No
  Sender: FDA-Public Use
  Company Number: 2004-111575-NL

PATIENT
  Age: 24 Year
  Sex: Female
  Weight: 47.73 kg

DRUGS (2)
  1. NUVARING [Suspect]
     Indication: CONTRACEPTION
     Dosage: 1 DF 4WEEKLY VAGINAL
     Route: 067
     Dates: start: 20031225
  2. TETRACYCLINE [Concomitant]

REACTIONS (1)
  - METRORRHAGIA [None]
